FAERS Safety Report 17323453 (Version 1)
Quarter: 2020Q1

REPORT INFORMATION
  Report Type: Spontaneous
  Country: US (occurrence: US)
  Receive Date: 20200127
  Receipt Date: 20200127
  Transmission Date: 20200409
  Serious: No
  Sender: FDA-Public Use
  Company Number: US-ELI_LILLY_AND_COMPANY-US202001010799

PATIENT
  Age: 75 Year
  Sex: Female

DRUGS (1)
  1. TRULICITY [Suspect]
     Active Substance: DULAGLUTIDE
     Indication: PRODUCT USED FOR UNKNOWN INDICATION
     Dosage: 0.75 MG, UNKNOWN
     Route: 065
     Dates: start: 201911

REACTIONS (6)
  - Dry skin [Unknown]
  - Scratch [Unknown]
  - Decreased appetite [Unknown]
  - Haemorrhage [Unknown]
  - Scab [Unknown]
  - Pruritus [Unknown]

NARRATIVE: CASE EVENT DATE: 201912
